FAERS Safety Report 18113883 (Version 2)
Quarter: 2021Q3

REPORT INFORMATION
  Report Type: Spontaneous
  Country: US (occurrence: US)
  Receive Date: 20200805
  Receipt Date: 20210702
  Transmission Date: 20211014
  Serious: Yes (Other)
  Sender: FDA-Public Use
  Company Number: US-GLAXOSMITHKLINE-US2020150932

PATIENT
  Sex: Female

DRUGS (3)
  1. ZANTAC [Suspect]
     Active Substance: RANITIDINE HYDROCHLORIDE
     Indication: ERUCTATION
     Dosage: UNK UNK, QD
     Route: 065
     Dates: start: 198901, end: 202001
  2. ZANTAC [Suspect]
     Active Substance: RANITIDINE HYDROCHLORIDE
     Indication: ERUCTATION
     Dosage: UNK UNK, QD
     Route: 065
     Dates: start: 198901, end: 202001
  3. ZANTAC [Suspect]
     Active Substance: RANITIDINE HYDROCHLORIDE
     Dates: start: 19850615, end: 20200115

REACTIONS (2)
  - Breast cancer [Unknown]
  - Hepatic cancer [Unknown]
